FAERS Safety Report 8356398-5 (Version None)
Quarter: 2012Q2

REPORT INFORMATION
  Report Type: 
  Country: None (occurrence: None)
  Receive Date: 20120514
  Receipt Date: 20120502
  Transmission Date: 20120825
  Serious: Yes (Hospitalization)
  Sender: FDA-Public Use
  Company Number: AT-NOVOPROD-350780

PATIENT
  Age: 53 Year
  Sex: Male

DRUGS (2)
  1. REPAGLINIDE [Suspect]
     Indication: TYPE 2 DIABETES MELLITUS
     Dosage: TABLET 90 STK.
     Route: 065
  2. METFORMIN HCL [Suspect]
     Indication: PRODUCT USED FOR UNKNOWN INDICATION
     Dosage: 1000 MG 50 TIMES IN 1 TOTAL

REACTIONS (11)
  - HYPOTENSION [None]
  - DIZZINESS [None]
  - LACTIC ACIDOSIS [None]
  - RENAL FAILURE [None]
  - SUICIDE ATTEMPT [None]
  - INTENTIONAL OVERDOSE [None]
  - SOMNOLENCE [None]
  - RESPIRATORY RATE [None]
  - DIARRHOEA [None]
  - ANION GAP INCREASED [None]
  - HYPOGLYCAEMIA [None]
